FAERS Safety Report 24993917 (Version 1)
Quarter: 2025Q1

REPORT INFORMATION
  Report Type: Spontaneous
  Country: GB (occurrence: GB)
  Receive Date: 20250221
  Receipt Date: 20250221
  Transmission Date: 20250409
  Serious: Yes (Life-Threatening, Other)
  Sender: AUROBINDO
  Company Number: GB-MHRA-TPP21457883C5754347YC1732542185095

PATIENT
  Age: 69 Year
  Sex: Male
  Weight: 86 kg

DRUGS (5)
  1. METRONIDAZOLE [Suspect]
     Active Substance: METRONIDAZOLE
     Indication: Ill-defined disorder
     Route: 065
     Dates: start: 20240906
  2. DICLOFENAC DIETHYLAMINE [Suspect]
     Active Substance: DICLOFENAC DIETHYLAMINE
     Indication: Ill-defined disorder
     Route: 065
     Dates: start: 20240712
  3. FEXOFENADINE [Suspect]
     Active Substance: FEXOFENADINE HYDROCHLORIDE
     Indication: Ill-defined disorder
     Route: 065
     Dates: start: 20240904
  4. LACIDIPINE [Suspect]
     Active Substance: LACIDIPINE
     Indication: Ill-defined disorder
     Route: 065
     Dates: start: 20240520
  5. PROPOFOL [Suspect]
     Active Substance: PROPOFOL
     Indication: Ill-defined disorder
     Route: 065
     Dates: start: 20241119

REACTIONS (1)
  - Anaphylactic reaction [Recovered/Resolved]
